FAERS Safety Report 13801198 (Version 2)
Quarter: 2017Q3

REPORT INFORMATION
  Report Type: Spontaneous
  Country: US (occurrence: US)
  Receive Date: 20170727
  Receipt Date: 20170905
  Transmission Date: 20171127
  Serious: Yes (Hospitalization)
  Sender: FDA-Public Use
  Company Number: US-STRIDES ARCOLAB LIMITED-2017SP011171

PATIENT

DRUGS (2)
  1. VANCOMYCIN [Suspect]
     Active Substance: VANCOMYCIN
     Indication: OSTEOMYELITIS
     Dosage: UNK
     Route: 042
  2. TRAMADOL. [Suspect]
     Active Substance: TRAMADOL
     Indication: OSTEOMYELITIS
     Dosage: UNK
     Route: 065

REACTIONS (15)
  - Macule [Recovered/Resolved]
  - Leukocytosis [Recovered/Resolved]
  - Renal tubular necrosis [Recovered/Resolved]
  - Mucosal erosion [Recovered/Resolved]
  - Acute kidney injury [Recovered/Resolved]
  - Acute generalised exanthematous pustulosis [Recovered/Resolved]
  - Papule [Recovered/Resolved]
  - Pyrexia [Recovered/Resolved]
  - Swelling face [Recovered/Resolved]
  - Eosinophilia [Recovered/Resolved]
  - Transaminases increased [Recovered/Resolved]
  - Neutrophilia [Recovered/Resolved]
  - Bandaemia [Recovered/Resolved]
  - Rash pustular [Recovered/Resolved]
  - Skin plaque [Recovered/Resolved]
